FAERS Safety Report 8599668-8 (Version None)
Quarter: 2012Q3

REPORT INFORMATION
  Report Type: 
  Country: None (occurrence: None)
  Receive Date: 20120816
  Receipt Date: 20120803
  Transmission Date: 20120928
  Serious: Yes (Hospitalization)
  Sender: FDA-Public Use
  Company Number: FR-FRI-1000037781

PATIENT
  Sex: Male

DRUGS (12)
  1. VIRAMUNE [Concomitant]
     Dosage: 400 MG
     Dates: start: 20070123
  2. CRESTOR [Concomitant]
     Dosage: 10 MG
  3. CITALOPRAM HYDROBROMIDE [Suspect]
     Indication: SMOKING CESSATION THERAPY
     Dosage: 10 MG
     Route: 048
     Dates: start: 20120413, end: 20120421
  4. CLARADOL CAFEINE [Concomitant]
     Dosage: 4 DF
  5. EZETIMIBE [Concomitant]
     Dosage: 40 MG
  6. SPIRIVA [Concomitant]
     Dosage: 4 DF
  7. CACIT VITAMINE D3 [Concomitant]
     Dosage: 1G/880UI
  8. CITALOPRAM HYDROBROMIDE [Suspect]
     Dosage: 20 MG
     Route: 048
     Dates: start: 20120422, end: 20120505
  9. ISOPTIN [Concomitant]
     Dosage: 360 MG
  10. NORVIR [Concomitant]
     Dosage: 200 MG
     Dates: start: 20070123
  11. INVIRASE [Concomitant]
     Dosage: 2000 MG
     Dates: start: 20070123
  12. INDAPAMIDE [Concomitant]
     Dosage: 2 MG/0.625 MG

REACTIONS (10)
  - PALPITATIONS [None]
  - OFF LABEL USE [None]
  - ORTHOSTATIC HYPOTENSION [None]
  - DIARRHOEA [None]
  - URINE ODOUR ABNORMAL [None]
  - ABDOMINAL PAIN [None]
  - DECREASED APPETITE [None]
  - NAUSEA [None]
  - CHROMATURIA [None]
  - HYPERHIDROSIS [None]
